FAERS Safety Report 11999612 (Version 1)
Quarter: 2016Q1

REPORT INFORMATION
  Report Type: Report from Study
  Country: US (occurrence: US)
  Receive Date: 20160204
  Receipt Date: 20160204
  Transmission Date: 20160526
  Serious: Yes (Other)
  Sender: FDA-Public Use
  Company Number: US-ACCORD-037544

PATIENT
  Age: 12 Year
  Sex: Male

DRUGS (15)
  1. BUDESONIDE. [Concomitant]
     Active Substance: BUDESONIDE
  2. ONDANSETRON [Concomitant]
     Active Substance: ONDANSETRON
  3. SULFAMETHOXAZOLE/TRIMETHOPRIM [Concomitant]
  4. DAUNORUBICIN [Concomitant]
     Active Substance: DAUNORUBICIN
  5. FENTANYL. [Concomitant]
     Active Substance: FENTANYL
  6. AMOXICILLIN. [Concomitant]
     Active Substance: AMOXICILLIN
  7. RANITIDINE [Concomitant]
     Active Substance: RANITIDINE\RANITIDINE HYDROCHLORIDE
  8. SALBUTAMOL [Concomitant]
     Active Substance: ALBUTEROL
  9. ALLOPURINOL. [Concomitant]
     Active Substance: ALLOPURINOL
  10. METHOTREXATE [Suspect]
     Active Substance: METHOTREXATE
     Indication: ACUTE LYMPHOCYTIC LEUKAEMIA
     Route: 037
  11. AMLODIPINE [Concomitant]
     Active Substance: AMLODIPINE BESYLATE
  12. MACROGOL [Concomitant]
     Active Substance: POLYETHYLENE GLYCOLS
  13. SENNA [Concomitant]
     Active Substance: SENNA LEAF\SENNOSIDES\SENNOSIDES A AND B
  14. VINCRISTINE [Concomitant]
     Active Substance: VINCRISTINE
  15. IPRATROPIUM [Concomitant]
     Active Substance: IPRATROPIUM

REACTIONS (3)
  - Neurotoxicity [Unknown]
  - Hypertension [Unknown]
  - Seizure [Unknown]
